FAERS Safety Report 6999877-5 (Version None)
Quarter: 2010Q3

REPORT INFORMATION
  Report Type: 
  Country: None (occurrence: None)
  Receive Date: 20100920
  Receipt Date: 20100115
  Transmission Date: 20110219
  Serious: Yes (Other)
  Sender: FDA-Public Use
  Company Number: US-ASTRAZENECA-2009SE19311

PATIENT
  Age: 12143 Day
  Sex: Male
  Weight: 78.5 kg

DRUGS (6)
  1. SEROQUEL [Suspect]
     Indication: DEPRESSION
     Dosage: 100 MG HALF TABLET AT BEDTIME
     Route: 048
     Dates: start: 20050203
  2. SEROQUEL [Suspect]
     Indication: ANXIETY
     Dosage: 100 MG HALF TABLET AT BEDTIME
     Route: 048
     Dates: start: 20050203
  3. SEROQUEL [Suspect]
     Route: 048
     Dates: start: 20080401, end: 20090401
  4. SEROQUEL [Suspect]
     Route: 048
     Dates: start: 20080401, end: 20090401
  5. LEXAPRO [Concomitant]
     Dates: start: 20050203
  6. HYDROXYZINE [Concomitant]
     Dosage: 25 MG IN AM, 100 IN PM

REACTIONS (2)
  - SUICIDAL IDEATION [None]
  - TYPE 2 DIABETES MELLITUS [None]
